FAERS Safety Report 6287962-5 (Version None)
Quarter: 2009Q3

REPORT INFORMATION
  Report Type: 
  Country: None (occurrence: None)
  Receive Date: 20090729
  Receipt Date: 20090720
  Transmission Date: 20100115
  Serious: Yes (Other)
  Sender: FDA-Public Use
  Company Number: GB-JNJFOC-20090706534

PATIENT
  Age: 75 Year
  Sex: Male
  Weight: 85 kg

DRUGS (12)
  1. REMICADE [Suspect]
     Indication: RHEUMATOID ARTHRITIS
     Route: 042
  2. ASPIRIN [Concomitant]
  3. VITAMIN B-12 [Concomitant]
  4. BECONASE [Concomitant]
  5. CO-AMILOFRUSE [Concomitant]
  6. ACETAMINOPHEN W/ CODEINE [Concomitant]
  7. DIGOXIN [Concomitant]
  8. FINASTERIDE [Concomitant]
  9. HYPROMELLOSE [Concomitant]
  10. LOSARTAN POTASSIUM [Concomitant]
  11. TAMSULOSIN HYDROCHLORIDE [Concomitant]
  12. HYDROXYCHLOROQUINE SULFATE [Concomitant]

REACTIONS (1)
  - RENAL CANCER [None]
